FAERS Safety Report 5284237-8 (Version None)
Quarter: 2007Q1

REPORT INFORMATION
  Report Type: 
  Country: None (occurrence: None)
  Receive Date: 20070327
  Receipt Date: 20070318
  Transmission Date: 20070707
  Serious: Yes (Disabling)
  Sender: FDA-Public Use
  Company Number: STI-2006-00672

PATIENT
  Age: 51 Year
  Sex: Female

DRUGS (6)
  1. UREA PEROXIDE [Suspect]
     Indication: DRY SKIN
     Dosage: TOPICAL
     Dates: start: 20060901, end: 20060901
  2. UREA PEROXIDE [Suspect]
     Indication: HYPERKERATOSIS
     Dosage: TOPICAL
     Dates: start: 20060901, end: 20060901
  3. BUMEX [Concomitant]
  4. UNSPECIFIED MEDICATION (ANTI-DIABETICS) [Concomitant]
  5. UNSPECIFIED MEDICATION (ANTIHYPERTENSIVES) [Concomitant]
  6. UNSPECIFIED MEDICATION (OTHER RESPIRATORY SYSTEM PRODUCTS) [Concomitant]

REACTIONS (9)
  - ACTIVITIES OF DAILY LIVING IMPAIRED [None]
  - BURNING SENSATION [None]
  - CAUSTIC INJURY [None]
  - FEELING HOT [None]
  - GAIT DISTURBANCE [None]
  - MOBILITY DECREASED [None]
  - PAIN IN EXTREMITY [None]
  - SKIN DISORDER [None]
  - SKIN HYPERPIGMENTATION [None]
